FAERS Safety Report 4387988-2 (Version None)
Quarter: 2004Q2

REPORT INFORMATION
  Report Type: 
  Country: None (occurrence: None)
  Receive Date: 20040607
  Receipt Date: 20030902
  Transmission Date: 20050107
  Serious: Yes (Other)
  Sender: FDA-Public Use
  Company Number: 346080

PATIENT
  Age: 15 Year
  Sex: Female

DRUGS (2)
  1. ACCUTANE [Suspect]
     Indication: ACNE
     Dosage: 40 MG DAILY ORAL
     Route: 048
     Dates: start: 20020311, end: 20020828
  2. ALESSE [Concomitant]

REACTIONS (10)
  - BACK PAIN [None]
  - CRYING [None]
  - DEPRESSION [None]
  - DIZZINESS [None]
  - DRY SKIN [None]
  - GENITAL PRURITUS FEMALE [None]
  - KERATOCONJUNCTIVITIS SICCA [None]
  - OESOPHAGITIS [None]
  - RASH [None]
  - VAGINAL INFECTION [None]
